FAERS Safety Report 4391506-2 (Version None)
Quarter: 2004Q3

REPORT INFORMATION
  Report Type: 
  Country: None (occurrence: None)
  Receive Date: 20040702
  Receipt Date: 20040312
  Transmission Date: 20050211
  Serious: Yes (Disabling)
  Sender: FDA-Public Use
  Company Number: 2004UW04768

PATIENT
  Sex: Male

DRUGS (8)
  1. CRESTOR [Suspect]
     Dosage: 10 MG QD PO
     Route: 048
  2. TIAZAC [Concomitant]
  3. LEVOTHYROXINE SODIUM [Concomitant]
  4. TOPROL-XL [Concomitant]
  5. VIAGRA [Concomitant]
  6. RANITIDINE [Concomitant]
  7. CELEBREX [Concomitant]
  8. AVALIDE [Concomitant]

REACTIONS (3)
  - BUTTOCK PAIN [None]
  - DIZZINESS [None]
  - MUSCULOSKELETAL STIFFNESS [None]
